FAERS Safety Report 13384055 (Version 1)
Quarter: 2017Q1

REPORT INFORMATION
  Report Type: Spontaneous
  Country: ES (occurrence: ES)
  Receive Date: 20170329
  Receipt Date: 20170329
  Transmission Date: 20170429
  Serious: Yes (Life-Threatening, Hospitalization)
  Sender: FDA-Public Use
  Company Number: ES-TEVA-752570ISR

PATIENT
  Age: 49 Year
  Sex: Female
  Weight: 54 kg

DRUGS (5)
  1. LINEZOLID TEVA PHARMA 600MG [Suspect]
     Active Substance: LINEZOLID
     Indication: NOCARDIOSIS
     Dosage: 1200 MILLIGRAM DAILY; LINEZOLID TEVA PHARMA 600MG
     Route: 048
     Dates: start: 20161007, end: 20161024
  2. LEVETIRACETAM SANDOZ 1000MG [Concomitant]
     Dosage: 2000 MILLIGRAM DAILY; LEVETIRACETAM SANDOZ 1000MG
     Route: 048
     Dates: start: 20160501
  3. FUROSEMIDA SANDOZ 40MG [Concomitant]
     Dosage: 40 MILLIGRAM DAILY; FUROSEMIDA SANDOZ 40MG
     Route: 048
     Dates: start: 20161001
  4. SUMIAL 40MG [Concomitant]
     Indication: VARICES OESOPHAGEAL
     Dosage: 40 MILLIGRAM DAILY; SUMIAL 40MG
     Route: 048
  5. ALDACTONE 100MG [Concomitant]
     Dosage: 100 MILLIGRAM DAILY; ALDACTONE 100MG
     Route: 048
     Dates: start: 20160301

REACTIONS (2)
  - Agranulocytosis [Recovered/Resolved]
  - Thrombocytopenia [Recovered/Resolved]

NARRATIVE: CASE EVENT DATE: 20161024
